FAERS Safety Report 13530043 (Version 1)
Quarter: 2017Q2

REPORT INFORMATION
  Report Type: Spontaneous
  Country: US (occurrence: US)
  Receive Date: 20170509
  Receipt Date: 20170509
  Transmission Date: 20170830
  Serious: Yes (Other)
  Sender: FDA-Public Use
  Company Number: US-ASTRAZENECA-2017SE47188

PATIENT
  Age: 77 Year
  Sex: Male

DRUGS (13)
  1. XGEVA [Suspect]
     Active Substance: DENOSUMAB
     Indication: PROSTATE CANCER METASTATIC
     Route: 058
     Dates: start: 20160825
  2. OSCAL [Concomitant]
     Active Substance: CALCIUM CARBONATE
  3. GLUCOSAMINE AND CHONDROITIN [Concomitant]
     Active Substance: CHONDROITIN SULFATE (BOVINE)\GLUCOSAMINE HYDROCHLORIDE
  4. MELATONIN [Concomitant]
     Active Substance: MELATONIN
  5. ECHINACEA PURPUREA [Concomitant]
     Active Substance: ECHINACEA PURPUREA
  6. MULTIVITAMIN [Concomitant]
     Active Substance: VITAMINS
     Route: 048
  7. ZOLADEX [Suspect]
     Active Substance: GOSERELIN ACETATE
     Route: 058
     Dates: start: 200706
  8. SPASCUPREEL [Concomitant]
  9. HYDROCODONE [Concomitant]
     Active Substance: HYDROCODONE
  10. CALCIUM [Concomitant]
     Active Substance: CALCIUM
     Dosage: 500.0MG UNKNOWN
  11. XTANDI [Suspect]
     Active Substance: ENZALUTAMIDE
     Indication: PROSTATE CANCER
     Route: 048
     Dates: start: 20160810
  12. BENADRYL [Concomitant]
     Active Substance: DIPHENHYDRAMINE HYDROCHLORIDE
  13. ARNICA MONTANA. [Concomitant]
     Active Substance: HOMEOPATHICS

REACTIONS (7)
  - Hydronephrosis [Unknown]
  - Metastases to bone [Recovering/Resolving]
  - Muscular weakness [Not Recovered/Not Resolved]
  - Malignant neoplasm progression [Unknown]
  - Fatigue [Unknown]
  - Metastases to liver [Unknown]
  - Insomnia [Not Recovered/Not Resolved]

NARRATIVE: CASE EVENT DATE: 20150519
